FAERS Safety Report 15526153 (Version 3)
Quarter: 2018Q4

REPORT INFORMATION
  Report Type: Spontaneous
  Country: PT (occurrence: PT)
  Receive Date: 20181018
  Receipt Date: 20181107
  Transmission Date: 20190205
  Serious: Yes (Other)
  Sender: FDA-Public Use
  Company Number: PT-BAYER-2018-189517

PATIENT
  Age: 77 Year
  Sex: Female

DRUGS (4)
  1. ETHAMBUTOL [Suspect]
     Active Substance: ETHAMBUTOL HYDROCHLORIDE
     Indication: ATYPICAL MYCOBACTERIAL INFECTION
     Dosage: 1200 MG, QD
     Route: 065
  2. CIPROFLOXACIN. [Suspect]
     Active Substance: CIPROFLOXACIN
     Indication: LUNG INFECTION
     Dosage: 750 MG, BID
     Route: 065
  3. CIPROFLOXACIN. [Suspect]
     Active Substance: CIPROFLOXACIN
     Indication: ATYPICAL MYCOBACTERIAL INFECTION
  4. RIFAMYCIN [Suspect]
     Active Substance: RIFAMYCIN
     Indication: LUNG INFECTION
     Dosage: 600 MG, QD
     Route: 065

REACTIONS (5)
  - Gastrointestinal toxicity [Unknown]
  - Peripheral sensory neuropathy [Recovering/Resolving]
  - Visual acuity reduced [None]
  - Visual acuity reduced [Unknown]
  - Hypoaesthesia [Recovering/Resolving]
